FAERS Safety Report 19402227 (Version 1)
Quarter: 2021Q2

REPORT INFORMATION
  Report Type: Spontaneous
  Country: US (occurrence: US)
  Receive Date: 20210610
  Receipt Date: 20210610
  Transmission Date: 20210717
  Serious: No
  Sender: FDA-Public Use
  Company Number: US-COLLEGIUM PHARMACEUTICAL, INC.-2021CGM00193

PATIENT
  Age: 63 Year
  Sex: Male
  Weight: 126.98 kg

DRUGS (30)
  1. ELIQUIS [Concomitant]
     Active Substance: APIXABAN
     Dosage: 2.5 MG, 2X/DAY
  2. PROTONIX [Concomitant]
     Active Substance: PANTOPRAZOLE SODIUM
     Dosage: 40 MG, 2X/DAY
  3. ^BROSIMIDE^ [Concomitant]
     Dosage: 80 MG, 1X/DAY
  4. ATORVASTATIN [Concomitant]
     Active Substance: ATORVASTATIN
     Dosage: 80 MG, 1X/DAY
  5. MECLIZINE [Concomitant]
     Active Substance: MECLIZINE HYDROCHLORIDE
     Dosage: 25 MG, AS NEEDED
  6. XTAMPZA ER [Suspect]
     Active Substance: OXYCODONE
     Indication: PAIN
     Dosage: 18 MG, 2X/DAY (EVERY 12 HOURS)
     Route: 048
     Dates: start: 2020
  7. FLONASE [Concomitant]
     Active Substance: FLUTICASONE PROPIONATE
     Dosage: UNK, 2X/DAY
  8. TRULANCE [Concomitant]
     Active Substance: PLECANATIDE
     Dosage: 3 MG, 1X/DAY
  9. BABY ASPIRIN [Concomitant]
     Active Substance: ASPIRIN
     Dosage: 1 DOSAGE UNITS, 1X/DAY
  10. ZOFRAN [Concomitant]
     Active Substance: ONDANSETRON HYDROCHLORIDE
     Dosage: 4 MG, 3X/DAY (EVERY 8 HOURS AS NEEDED)
  11. METOPROLOL. [Concomitant]
     Active Substance: METOPROLOL
     Dosage: UNK
  12. BUMEX [Concomitant]
     Active Substance: BUMETANIDE
     Dosage: 1 MG, 3X/WEEK
  13. DISOPYRAMIDE (CIPLA) [Suspect]
     Active Substance: DISOPYRAMIDE
     Indication: CARDIAC DISORDER
     Dosage: 150 MG, 2X/DAY
  14. MIRALAX [Concomitant]
     Active Substance: POLYETHYLENE GLYCOL 3350
     Dosage: 17 G, 2X/DAY
  15. MOVANTIK [Concomitant]
     Active Substance: NALOXEGOL OXALATE
     Dosage: 25 MG, 1X/DAY
  16. ZANAFLEX [Concomitant]
     Active Substance: TIZANIDINE HYDROCHLORIDE
     Dosage: 4 MG, 3X/DAY (EVERY 8 HOURS)
  17. SPIRIVA [Concomitant]
     Active Substance: TIOTROPIUM BROMIDE MONOHYDRATE
     Dosage: 125 ?G, 2X/DAY
  18. METFORMIN HCL [Concomitant]
     Active Substance: METFORMIN HYDROCHLORIDE
     Dosage: 500 MG AFTER EACH MEAL
  19. OXYMORPHONE [Concomitant]
     Active Substance: OXYMORPHONE
     Dosage: 20 MG, 4X/DAY
  20. ^HYDROLIZINE^ [Concomitant]
     Dosage: 25 MG, AS NEEDED
  21. SENNA S [Concomitant]
     Active Substance: DOCUSATE SODIUM\SENNA LEAF
     Dosage: 2 DOSAGE UNITS, 2X/DAY
  22. TAMSULOSIN [Concomitant]
     Active Substance: TAMSULOSIN
     Dosage: ^4 MG^
  23. PIRACETAM [Concomitant]
     Active Substance: PIRACETAM
  24. POTASSIUM ER (EXTENDED?RELEASE) [Concomitant]
     Dosage: 20 ?G, 1X/DAY
  25. SPIRONOLACTONE. [Concomitant]
     Active Substance: SPIRONOLACTONE
     Dosage: 25 MG, 1X/DAY
  26. HYDROXYZINE [Concomitant]
     Active Substance: HYDROXYZINE HYDROCHLORIDE
     Dosage: 500 MG, UP TO 3X/DAY AS NEEDED
  27. BUMEX [Concomitant]
     Active Substance: BUMETANIDE
     Dosage: 2 MG, 4X/WEEK
  28. UNSPECIFIED STEROID [Concomitant]
     Active Substance: UNSPECIFIED INGREDIENT
  29. PREGABALIN (CIPLA) [Suspect]
     Active Substance: PREGABALIN
     Dosage: 100 MG, 3X/DAY
  30. ARNUITY ELLIPTA [Concomitant]
     Active Substance: FLUTICASONE FUROATE

REACTIONS (2)
  - Product quality issue [Not Recovered/Not Resolved]
  - Therapeutic product effect incomplete [Not Recovered/Not Resolved]

NARRATIVE: CASE EVENT DATE: 2020
